FAERS Safety Report 10611566 (Version 2)
Quarter: 2015Q2

REPORT INFORMATION
  Report Type: Report from Study
  Country: TR (occurrence: TR)
  Receive Date: 20141126
  Receipt Date: 20150528
  Transmission Date: 20150821
  Serious: Yes (Hospitalization)
  Sender: FDA-Public Use
  Company Number: TR-NOVOPROD-429803

PATIENT
  Sex: Male
  Weight: 3.67 kg

DRUGS (2)
  1. HUMULIN N [Concomitant]
     Active Substance: INSULIN HUMAN
     Indication: GESTATIONAL DIABETES
     Dosage: 16 U, QD
     Route: 064
  2. NOVORAPID [Suspect]
     Active Substance: INSULIN ASPART
     Indication: GESTATIONAL DIABETES
     Dosage: 17 U, QD
     Route: 064
     Dates: start: 20140818, end: 20140925

REACTIONS (2)
  - Foetal exposure during pregnancy [Recovered/Resolved]
  - Jaundice neonatal [Recovered/Resolved]

NARRATIVE: CASE EVENT DATE: 20140818
